FAERS Safety Report 8917212 (Version 2)
Quarter: 2012Q4

REPORT INFORMATION
  Report Type: 
  Country: US (occurrence: US)
  Receive Date: 20121120
  Receipt Date: 20121126
  Transmission Date: 20130627
  Serious: Yes (Disabling)
  Sender: FDA-Public Use
  Company Number: US-PFIZER INC-2012288567

PATIENT
  Age: 61 Year
  Sex: Male

DRUGS (1)
  1. PROTONIX [Suspect]
     Dosage: 40 mg, 1x/day
     Route: 048

REACTIONS (2)
  - Psoriasis [Unknown]
  - Gout [Unknown]
